FAERS Safety Report 25288671 (Version 1)
Quarter: 2025Q2

REPORT INFORMATION
  Report Type: Spontaneous
  Country: US (occurrence: US)
  Receive Date: 20250509
  Receipt Date: 20250509
  Transmission Date: 20250716
  Serious: Yes (Other)
  Sender: TEVA
  Company Number: US-TEVA-VS-3328913

PATIENT

DRUGS (1)
  1. AMPHETAMINE\DIPHENHYDRAMINE [Suspect]
     Active Substance: AMPHETAMINE\DIPHENHYDRAMINE
     Indication: Product used for unknown indication
     Route: 065

REACTIONS (7)
  - Suicidal ideation [Unknown]
  - Disturbance in attention [Unknown]
  - Agitation [Unknown]
  - Depression [Unknown]
  - Drug ineffective [Unknown]
  - Narcolepsy [Unknown]
  - Fatigue [Unknown]
